FAERS Safety Report 6518215-5 (Version None)
Quarter: 2009Q4

REPORT INFORMATION
  Report Type: 
  Country: None (occurrence: None)
  Receive Date: 20091218
  Receipt Date: 20091215
  Transmission Date: 20100525
  Serious: Yes (Life-Threatening)
  Sender: FDA-Public Use
  Company Number: 2009SP041918

PATIENT
  Age: 75 Year
  Sex: Male
  Weight: 46 kg

DRUGS (4)
  1. ROCURONIUM BROMIDE [Suspect]
     Indication: NEUROMUSCULAR BLOCKING THERAPY
     Dosage: IV
     Route: 042
     Dates: start: 20090520, end: 20090520
  2. PROPOFOL [Concomitant]
  3. ULTIVA [Concomitant]
  4. LEPETAN [Concomitant]

REACTIONS (7)
  - AIRWAY COMPLICATION OF ANAESTHESIA [None]
  - DEPRESSED LEVEL OF CONSCIOUSNESS [None]
  - DYSKINESIA [None]
  - HYPOVENTILATION [None]
  - NO THERAPEUTIC RESPONSE [None]
  - OBSTRUCTIVE AIRWAYS DISORDER [None]
  - TONGUE OEDEMA [None]
